FAERS Safety Report 4662475-2 (Version None)
Quarter: 2005Q2

REPORT INFORMATION
  Report Type: 
  Country: None (occurrence: None)
  Receive Date: 20050513
  Receipt Date: 20050513
  Transmission Date: 20051028
  Serious: Yes (Life-Threatening, Hospitalization, Disabling)
  Sender: FDA-Public Use
  Company Number: None

PATIENT
  Age: 37 Year
  Sex: Male
  Weight: 86.1834 kg

DRUGS (1)
  1. LARIAM [Suspect]
     Indication: MALARIA
     Dosage: 250 MG   WEEKLY  ORAL
     Route: 048
     Dates: start: 20050307, end: 20050408

REACTIONS (1)
  - IDIOPATHIC THROMBOCYTOPENIC PURPURA [None]
